FAERS Safety Report 9994857 (Version 1)
Quarter: 2014Q1

REPORT INFORMATION
  Report Type: Spontaneous
  Country: US (occurrence: US)
  Receive Date: 20140311
  Receipt Date: 20140311
  Transmission Date: 20141002
  Serious: Yes (Other)
  Sender: FDA-Public Use
  Company Number: US-JNJFOC-20140301317

PATIENT
  Sex: Female

DRUGS (1)
  1. RISPERDAL [Suspect]
     Indication: DEPRESSION
     Route: 048
     Dates: start: 2014, end: 2014

REACTIONS (4)
  - Amnesia [Not Recovered/Not Resolved]
  - Muscle twitching [Unknown]
  - Bruxism [Unknown]
  - Tooth loss [Recovered/Resolved]
